FAERS Safety Report 12686623 (Version 1)
Quarter: 2016Q3

REPORT INFORMATION
  Report Type: Spontaneous
  Country: GB (occurrence: GB)
  Receive Date: 20160825
  Receipt Date: 20160825
  Transmission Date: 20161109
  Serious: Yes (Death, Other)
  Sender: FDA-Public Use
  Company Number: GB-MYLANLABS-2016M1034820

PATIENT

DRUGS (4)
  1. CARBOPLATIN. [Concomitant]
     Active Substance: CARBOPLATIN
     Dosage: UNK (AUC5)
     Route: 065
  2. TAXOL [Suspect]
     Active Substance: PACLITAXEL
     Indication: CERVIX CARCINOMA
     Dosage: UNK
     Route: 065
  3. AVASTIN                            /00848101/ [Suspect]
     Active Substance: SIMVASTATIN
     Indication: CERVIX CARCINOMA
     Dosage: 15 MG/M2, UNK
     Route: 065
  4. TOPOTECAN [Suspect]
     Active Substance: TOPOTECAN\TOPOTECAN HYDROCHLORIDE
     Indication: CERVIX CARCINOMA
     Dosage: 0.75 DF, UNK (DAY 1 TO 3)
     Route: 065

REACTIONS (6)
  - General physical health deterioration [Unknown]
  - Bone marrow failure [Unknown]
  - Metastases to bone [Unknown]
  - Therapeutic response decreased [None]
  - Death [Fatal]
  - Drug hypersensitivity [Unknown]
